FAERS Safety Report 5407985-5 (Version None)
Quarter: 2007Q3

REPORT INFORMATION
  Report Type: 
  Country: None (occurrence: None)
  Receive Date: 20070803
  Receipt Date: 20070723
  Transmission Date: 20080115
  Serious: Yes (Death)
  Sender: FDA-Public Use
  Company Number: GXKR2007TH06419

PATIENT
  Age: 33 Year
  Sex: Female

DRUGS (4)
  1. PARACETAMOL (NGX)(PARACETAMOL) UNKNOWN [Suspect]
     Indication: NASOPHARYNGITIS
     Dosage: TOTAL DOSE 4000 MG
  2. RANITIDINE [Concomitant]
  3. ROXITHROMYCINE (ROXITHROMYCIN) [Concomitant]
  4. DIMENHYDRAMINE [Concomitant]

REACTIONS (17)
  - ACUTE HEPATIC FAILURE [None]
  - ACUTE RESPIRATORY FAILURE [None]
  - BLOOD COUNT ABNORMAL [None]
  - BODY TEMPERATURE INCREASED [None]
  - COAGULOPATHY [None]
  - DRUG TOXICITY [None]
  - ENCEPHALOPATHY [None]
  - HAEMODIALYSIS [None]
  - HEPATIC NECROSIS [None]
  - HEPATOCELLULAR DAMAGE [None]
  - METABOLIC ACIDOSIS [None]
  - MULTI-ORGAN FAILURE [None]
  - PULMONARY OEDEMA [None]
  - RENAL FAILURE [None]
  - RENAL TUBULAR NECROSIS [None]
  - RESPIRATORY ALKALOSIS [None]
  - SHOCK [None]
